FAERS Safety Report 8873350 (Version 1)
Quarter: 2012Q4

REPORT INFORMATION
  Report Type: 
  Country: US (occurrence: US)
  Receive Date: 20121029
  Receipt Date: 20121029
  Transmission Date: 20130627
  Serious: Yes (Other)
  Sender: FDA-Public Use
  Company Number: CHPA2012US022135

PATIENT
  Sex: Male

DRUGS (1)
  1. NODOZ [Suspect]
     Indication: SOMNOLENCE
     Dosage: 200 mg, Unk
     Route: 048

REACTIONS (2)
  - Myocardial infarction [Recovered/Resolved]
  - Pneumonia [Not Recovered/Not Resolved]
